FAERS Safety Report 6015226-3 (Version None)
Quarter: 2008Q4

REPORT INFORMATION
  Report Type: 
  Country: None (occurrence: None)
  Receive Date: 20081219
  Receipt Date: 20081219
  Transmission Date: 20090506
  Serious: No
  Sender: FDA-Public Use
  Company Number: None

PATIENT
  Sex: Male

DRUGS (1)
  1. NASAL SPRAY SODIUM CHLORIDE 0.65% TARGET [Suspect]
     Dosage: TWO SPRAYS TWICE NASAL
     Route: 045
     Dates: start: 20081205, end: 20081215

REACTIONS (2)
  - INSTILLATION SITE IRRITATION [None]
  - PRODUCT QUALITY ISSUE [None]
